FAERS Safety Report 16327564 (Version 1)
Quarter: 2019Q2

REPORT INFORMATION
  Report Type: Spontaneous
  Country: US (occurrence: US)
  Receive Date: 20190412
  Receipt Date: 20190412
  Transmission Date: 20190711
  Serious: No
  Sender: FDA-Public Use
  Company Number: None

PATIENT
  Age: 58 Year
  Sex: Male

DRUGS (2)
  1. AFINITOR [Concomitant]
     Active Substance: EVEROLIMUS
     Dates: start: 20190405
  2. CABOMETYX [Suspect]
     Active Substance: CABOZANTINIB S-MALATE

REACTIONS (1)
  - Blood bilirubin increased [None]

NARRATIVE: CASE EVENT DATE: 20190412
